FAERS Safety Report 12217283 (Version 1)
Quarter: 2016Q1

REPORT INFORMATION
  Report Type: Spontaneous
  Country: US (occurrence: US)
  Receive Date: 20160329
  Receipt Date: 20160329
  Transmission Date: 20160526
  Serious: No
  Sender: FDA-Public Use
  Company Number: US-VIIV HEALTHCARE LIMITED-US2016GSK042245

PATIENT
  Sex: Female

DRUGS (2)
  1. TRIUMEQ [Suspect]
     Active Substance: ABACAVIR SULFATE\DOLUTEGRAVIR SODIUM\LAMIVUDINE
     Dosage: STARTED TAKING REGULARY
     Dates: start: 201511
  2. TRIUMEQ [Suspect]
     Active Substance: ABACAVIR SULFATE\DOLUTEGRAVIR SODIUM\LAMIVUDINE
     Indication: PRODUCT USED FOR UNKNOWN INDICATION
     Dosage: INTERMITTENTLY
     Dates: start: 201501

REACTIONS (4)
  - Treatment noncompliance [Unknown]
  - Myalgia [Recovered/Resolved]
  - Blood creatine phosphokinase increased [Recovered/Resolved]
  - Adverse event [Unknown]
